FAERS Safety Report 7090452-3 (Version None)
Quarter: 2010Q4

REPORT INFORMATION
  Report Type: 
  Country: None (occurrence: None)
  Receive Date: 20101109
  Receipt Date: 20101026
  Transmission Date: 20110411
  Serious: Yes (Hospitalization)
  Sender: FDA-Public Use
  Company Number: US-BAYER-201039579NA

PATIENT
  Age: 47 Year
  Sex: Female
  Weight: 82 kg

DRUGS (5)
  1. YASMIN [Suspect]
     Indication: CONTRACEPTION
     Route: 048
     Dates: start: 20070401, end: 20080718
  2. OCELLA [Suspect]
     Indication: CONTRACEPTION
     Dates: start: 20080718, end: 20091018
  3. NITROFURANTOIN- MACRO [Concomitant]
     Indication: ANTIBIOTIC THERAPY
     Route: 065
     Dates: start: 20081108
  4. AMOXICILLIN [Concomitant]
     Indication: DENTAL CARE
     Route: 065
     Dates: start: 20081011
  5. IBUPROFEN [Concomitant]
     Indication: PRODUCT USED FOR UNKNOWN INDICATION
     Route: 065
     Dates: start: 20081011

REACTIONS (5)
  - ABDOMINAL PAIN [None]
  - CHOLECYSTITIS [None]
  - CHOLELITHIASIS [None]
  - GASTROENTERITIS [None]
  - URINARY TRACT INFECTION [None]
